FAERS Safety Report 8966898 (Version 1)
Quarter: 2012Q4

REPORT INFORMATION
  Report Type: 
  Country: GB (occurrence: GB)
  Receive Date: 20121214
  Receipt Date: 20121214
  Transmission Date: 20130627
  Serious: Yes (Hospitalization)
  Sender: FDA-Public Use
  Company Number: GB-PFIZER INC-2012293867

PATIENT
  Age: 81 Year
  Sex: Male
  Weight: 93.3 kg

DRUGS (5)
  1. GENOTROPIN [Suspect]
     Dosage: 0.3 mg, 1x/day, 7 injections/week.
     Route: 058
     Dates: start: 20020516
  2. HYDROCORTISONE [Concomitant]
     Indication: ACTH DECREASED
     Dosage: UNK
     Dates: start: 19900301
  3. BROMOCRIPTINE [Concomitant]
     Indication: PARKINSONISM
     Dosage: UNK
     Dates: start: 19900301
  4. THYROXINE [Concomitant]
     Indication: HYPOTHYROIDISM
     Dosage: UNK
     Dates: start: 20020208
  5. ATORVASTATIN [Concomitant]
     Indication: HYPERCHOLESTEROLAEMIA
     Dosage: UNK
     Dates: start: 20040801

REACTIONS (1)
  - Eye disorder [Unknown]
